FAERS Safety Report 7526647-1 (Version None)
Quarter: 2011Q2

REPORT INFORMATION
  Report Type: 
  Country: None (occurrence: None)
  Receive Date: 20110606
  Receipt Date: 20110524
  Transmission Date: 20111010
  Serious: Yes (Other)
  Sender: FDA-Public Use
  Company Number: US-BAYER-2010-002225

PATIENT
  Age: 35 Year
  Sex: Female
  Weight: 104.8 kg

DRUGS (10)
  1. HYDROCODONE BITARTRATE [Concomitant]
  2. VITAMINS [Concomitant]
  3. AMBIEN [Concomitant]
  4. TRAZODONE HCL [Concomitant]
  5. FLEXERIL [Concomitant]
  6. LORAZEPAM [Concomitant]
  7. NEURONTIN [Concomitant]
  8. LOMOTIL [DIPHENOXYLATE HYDROCHLORIDE] [Concomitant]
  9. YASMIN [Suspect]
     Indication: MENSTRUAL CYCLE MANAGEMENT
     Dosage: UNK
     Dates: start: 19940101, end: 20070101
  10. LEXAPRO [Concomitant]

REACTIONS (9)
  - DIARRHOEA [None]
  - THROMBOSIS [None]
  - DYSPEPSIA [None]
  - DEPRESSION [None]
  - CONSTIPATION [None]
  - ABDOMINAL DISTENSION [None]
  - CHOLECYSTECTOMY [None]
  - ANXIETY [None]
  - FLATULENCE [None]
